FAERS Safety Report 8439472-4 (Version None)
Quarter: 2012Q2

REPORT INFORMATION
  Report Type: 
  Country: None (occurrence: None)
  Receive Date: 20120615
  Receipt Date: 20120608
  Transmission Date: 20120825
  Serious: Yes (Other)
  Sender: FDA-Public Use
  Company Number: DE-JNJFOC-20120511182

PATIENT
  Sex: Male
  Weight: 90 kg

DRUGS (1)
  1. PALIPERIDONE [Suspect]
     Indication: PSYCHOTIC DISORDER
     Route: 030
     Dates: start: 20111125

REACTIONS (1)
  - HEPATIC ENZYME INCREASED [None]
